FAERS Safety Report 8596619-7 (Version None)
Quarter: 2012Q3

REPORT INFORMATION
  Report Type: 
  Country: None (occurrence: None)
  Receive Date: 20120815
  Receipt Date: 20120803
  Transmission Date: 20120928
  Serious: Yes (Hospitalization)
  Sender: FDA-Public Use
  Company Number: UG-BRISTOL-MYERS SQUIBB COMPANY-16849192

PATIENT
  Age: 12 Year
  Sex: Male

DRUGS (1)
  1. EFAVIRENZ [Suspect]
     Route: 048

REACTIONS (8)
  - SCREAMING [None]
  - THROAT IRRITATION [None]
  - ACCIDENTAL EXPOSURE [None]
  - TOXICITY TO VARIOUS AGENTS [None]
  - ABASIA [None]
  - VISION BLURRED [None]
  - TREMOR [None]
  - MUSCULAR WEAKNESS [None]
